FAERS Safety Report 21214723 (Version 1)
Quarter: 2022Q3

REPORT INFORMATION
  Report Type: Report from Study
  Country: US (occurrence: US)
  Receive Date: 20220816
  Receipt Date: 20220816
  Transmission Date: 20221026
  Serious: No
  Sender: FDA-Public Use
  Company Number: US-NOVARTISTESTPH-NVSC2022US184317

PATIENT
  Sex: Female

DRUGS (1)
  1. ENTRESTO [Suspect]
     Active Substance: SACUBITRIL\VALSARTAN
     Indication: Product used for unknown indication
     Dosage: 49/51MG BID
     Route: 065

REACTIONS (4)
  - Dyspnoea [Recovering/Resolving]
  - Throat clearing [Unknown]
  - Fatigue [Recovering/Resolving]
  - Cough [Unknown]
